FAERS Safety Report 13096460 (Version 1)
Quarter: 2017Q1

REPORT INFORMATION
  Report Type: Spontaneous
  Country: US (occurrence: US)
  Receive Date: 20170106
  Receipt Date: 20170106
  Transmission Date: 20170428
  Serious: No
  Sender: FDA-Public Use
  Company Number: None

PATIENT
  Age: 29 Year
  Sex: Female

DRUGS (1)
  1. HUMIRA [Suspect]
     Active Substance: ADALIMUMAB
     Indication: RHEUMATOID ARTHRITIS
     Dosage: 40MG OMKECT EVERY 2 WEEKS
     Route: 058
     Dates: start: 20161219

REACTIONS (7)
  - Arthralgia [None]
  - Headache [None]
  - Musculoskeletal stiffness [None]
  - Palpitations [None]
  - Nausea [None]
  - Hypoaesthesia [None]
  - Condition aggravated [None]

NARRATIVE: CASE EVENT DATE: 20161219
